FAERS Safety Report 6538796-5 (Version None)
Quarter: 2010Q1

REPORT INFORMATION
  Report Type: 
  Country: None (occurrence: None)
  Receive Date: 20100115
  Receipt Date: 20100107
  Transmission Date: 20100710
  Serious: Yes (Hospitalization)
  Sender: FDA-Public Use
  Company Number: JP-JNJFOC-20090902044

PATIENT
  Sex: Female
  Weight: 53 kg

DRUGS (10)
  1. RISPERDAL [Suspect]
     Indication: HYPERACUSIS
     Route: 048
     Dates: start: 20070901, end: 20080801
  2. RISPERDAL [Suspect]
     Indication: BIPOLAR I DISORDER
     Route: 048
     Dates: start: 20070901, end: 20080801
  3. PEROSPIRONE HYDROCHLORIDE [Suspect]
     Indication: BIPOLAR I DISORDER
     Route: 048
  4. OLANZAPINE [Suspect]
     Indication: BIPOLAR I DISORDER
     Route: 048
  5. UNSPECIFIED TRANQUILIZERS [Suspect]
     Indication: DRUG USE FOR UNKNOWN INDICATION
     Route: 065
  6. VALPROATE SODIUM [Concomitant]
     Indication: BIPOLAR I DISORDER
     Route: 048
  7. BROMAZEPAM [Concomitant]
     Indication: BIPOLAR I DISORDER
     Route: 048
  8. FLUNITRAZEPAM [Concomitant]
     Indication: BIPOLAR I DISORDER
     Route: 048
  9. FLUVOXAMINE MALEATE [Concomitant]
     Indication: BIPOLAR I DISORDER
     Route: 048
  10. DIAZEPAM [Concomitant]
     Dosage: AS NEEDED
     Route: 065

REACTIONS (2)
  - COGNITIVE DISORDER [None]
  - MEIGE'S SYNDROME [None]
